FAERS Safety Report 15044554 (Version 5)
Quarter: 2019Q2

REPORT INFORMATION
  Report Type: Spontaneous
  Country: US (occurrence: US)
  Receive Date: 20180621
  Receipt Date: 20190430
  Transmission Date: 20190711
  Serious: Yes (Other)
  Sender: FDA-Public Use
  Company Number: US-ASTRAZENECA-2018SE79387

PATIENT
  Age: 25588 Day
  Sex: Female

DRUGS (59)
  1. PLAVIX [Concomitant]
     Active Substance: CLOPIDOGREL BISULFATE
  2. MONTELUKAST [Concomitant]
     Active Substance: MONTELUKAST SODIUM
  3. LYRICA [Concomitant]
     Active Substance: PREGABALIN
  4. PAROXETINE. [Concomitant]
     Active Substance: PAROXETINE
  5. NEXIUM [Suspect]
     Active Substance: ESOMEPRAZOLE MAGNESIUM
     Dosage: GENERIC
     Route: 048
     Dates: start: 20160106
  6. NEXIUM 24HR [Suspect]
     Active Substance: ESOMEPRAZOLE MAGNESIUM
     Route: 048
  7. LASIX [Concomitant]
     Active Substance: FUROSEMIDE
  8. LANTUS [Concomitant]
     Active Substance: INSULIN GLARGINE
  9. GLUCOSAMINE [Concomitant]
     Active Substance: GLUCOSAMINE
  10. FOLBEE PLUS [Concomitant]
  11. GLIMEPIRIDE. [Concomitant]
     Active Substance: GLIMEPIRIDE
  12. WELCHOL [Concomitant]
     Active Substance: COLESEVELAM HYDROCHLORIDE
  13. CYMBALTA [Concomitant]
     Active Substance: DULOXETINE HYDROCHLORIDE
  14. PRILOSEC OTC [Suspect]
     Active Substance: OMEPRAZOLE MAGNESIUM
     Route: 048
  15. LABETALOL [Concomitant]
     Active Substance: LABETALOL\LABETALOL HYDROCHLORIDE
  16. CELEBREX [Concomitant]
     Active Substance: CELECOXIB
  17. NIFEDIPINE. [Concomitant]
     Active Substance: NIFEDIPINE
  18. TRAMADOL. [Concomitant]
     Active Substance: TRAMADOL
  19. PEPCID [Concomitant]
     Active Substance: FAMOTIDINE
  20. FLONASE [Concomitant]
     Active Substance: FLUTICASONE PROPIONATE
  21. NEXIUM [Suspect]
     Active Substance: ESOMEPRAZOLE MAGNESIUM
     Route: 048
     Dates: start: 20090702
  22. NEXIUM [Suspect]
     Active Substance: ESOMEPRAZOLE MAGNESIUM
     Route: 065
     Dates: start: 20060503
  23. LOTENSIN [Concomitant]
     Active Substance: BENAZEPRIL HYDROCHLORIDE
  24. ACTOS [Concomitant]
     Active Substance: PIOGLITAZONE HYDROCHLORIDE
  25. CILOSTAZOL. [Concomitant]
     Active Substance: CILOSTAZOL
  26. PANTOPRAZOLE [Concomitant]
     Active Substance: PANTOPRAZOLE
  27. VALTREX [Concomitant]
     Active Substance: VALACYCLOVIR HYDROCHLORIDE
  28. SPIRIVA [Concomitant]
     Active Substance: TIOTROPIUM BROMIDE MONOHYDRATE
  29. ROPINIROLE. [Concomitant]
     Active Substance: ROPINIROLE
  30. FENOFIBRATE. [Concomitant]
     Active Substance: FENOFIBRATE
  31. NEXIUM [Suspect]
     Active Substance: ESOMEPRAZOLE MAGNESIUM
     Route: 048
     Dates: start: 201301, end: 201310
  32. FAMOTIDINE. [Concomitant]
     Active Substance: FAMOTIDINE
  33. TUMS [Concomitant]
     Active Substance: CALCIUM CARBONATE
  34. VAGIFEM [Concomitant]
     Active Substance: ESTRADIOL
  35. HYDROCODONE/ACETAMINOPHEN [Concomitant]
     Active Substance: ACETAMINOPHEN\HYDROCODONE
  36. PREVACID [Suspect]
     Active Substance: LANSOPRAZOLE
     Route: 065
  37. ATACAND [Concomitant]
     Active Substance: CANDESARTAN CILEXETIL
  38. OCEAN SALINE NASAL SPRAY [Concomitant]
     Active Substance: SODIUM CHLORIDE
  39. ATENOLOL. [Concomitant]
     Active Substance: ATENOLOL
  40. DULOXETINE. [Concomitant]
     Active Substance: DULOXETINE
  41. SYMBICORT [Concomitant]
     Active Substance: BUDESONIDE\FORMOTEROL FUMARATE DIHYDRATE
  42. PRAVASTATIN. [Concomitant]
     Active Substance: PRAVASTATIN
  43. LISINOPRIL. [Concomitant]
     Active Substance: LISINOPRIL
  44. ZOLPIDEM [Concomitant]
     Active Substance: ZOLPIDEM\ZOLPIDEM TARTRATE
  45. NEXIUM [Suspect]
     Active Substance: ESOMEPRAZOLE MAGNESIUM
     Route: 048
  46. PRILOSEC [Suspect]
     Active Substance: OMEPRAZOLE MAGNESIUM
     Route: 048
  47. PREVACID 24 HR [Suspect]
     Active Substance: LANSOPRAZOLE
     Route: 065
  48. NITROGLYCERIN. [Concomitant]
     Active Substance: NITROGLYCERIN
  49. PENTOXIFYLLINE. [Concomitant]
     Active Substance: PENTOXIFYLLINE
  50. RENVELA [Concomitant]
     Active Substance: SEVELAMER CARBONATE
  51. SIMVASTATIN. [Concomitant]
     Active Substance: SIMVASTATIN
  52. CICLOPIROX. [Concomitant]
     Active Substance: CICLOPIROX
  53. PNEUMOVAX 23 [Concomitant]
     Active Substance: PNEUMOCOCCAL VACCINE, POLYVALENT 23
  54. ZETIA [Concomitant]
     Active Substance: EZETIMIBE
  55. AVAPRO [Concomitant]
     Active Substance: IRBESARTAN
  56. DULERA [Concomitant]
     Active Substance: FORMOTEROL FUMARATE DIHYDRATE\MOMETASONE FUROATE
  57. BUSPIRONE [Concomitant]
     Active Substance: BUSPIRONE HYDROCHLORIDE
  58. OMEPRAZOLE. [Concomitant]
     Active Substance: OMEPRAZOLE
  59. CYCLOBENZAPRINE. [Concomitant]
     Active Substance: CYCLOBENZAPRINE

REACTIONS (6)
  - Chronic kidney disease [Unknown]
  - Renal failure [Unknown]
  - Acute kidney injury [Unknown]
  - Hyperparathyroidism secondary [Unknown]
  - End stage renal disease [Unknown]
  - Nephrogenic anaemia [Unknown]

NARRATIVE: CASE EVENT DATE: 20060207
